FAERS Safety Report 8332535-3 (Version None)
Quarter: 2012Q2

REPORT INFORMATION
  Report Type: 
  Country: None (occurrence: None)
  Receive Date: 20120503
  Receipt Date: 20120430
  Transmission Date: 20120825
  Serious: Yes (Other)
  Sender: FDA-Public Use
  Company Number: US-PFIZER INC-2012075992

PATIENT
  Age: 48 Year
  Sex: Female

DRUGS (8)
  1. ZOLOFT [Suspect]
     Dosage: 100 MG, DAILY
     Route: 048
  2. LISINOPRIL [Concomitant]
     Dosage: 10 MG, DAILY
  3. HYDROCHLOROTHIAZIDE [Concomitant]
     Dosage: 12.5 MG, (25 MG 1/2) DAILY
     Dates: start: 20110812
  4. TRAZODONE [Concomitant]
     Dosage: 50 MG, EVERY HS
     Dates: start: 20111216
  5. ABILIFY [Concomitant]
     Dosage: 5 MG, EVERY HS
     Route: 048
  6. LOVASTATIN [Concomitant]
     Dosage: 40 MG,  EVERY HS
     Dates: start: 20111028
  7. BENADRYL [Concomitant]
     Dosage: 25 MG, 2X/DAY
     Dates: start: 20111216
  8. RANITIDINE [Concomitant]
     Dosage: 150 MG, 2X/DAY

REACTIONS (5)
  - HYPERTENSION [None]
  - GASTROOESOPHAGEAL REFLUX DISEASE [None]
  - LIPIDS INCREASED [None]
  - MAJOR DEPRESSION [None]
  - GLUCOSE TOLERANCE IMPAIRED [None]
